FAERS Safety Report 12432787 (Version 1)
Quarter: 2016Q2

REPORT INFORMATION
  Report Type: Spontaneous
  Country: US (occurrence: None)
  Receive Date: 20160602
  Receipt Date: 20160602
  Transmission Date: 20160815
  Serious: Yes (Other)
  Sender: FDA-Public Use
  Company Number: None

PATIENT
  Age: 63 Year
  Sex: Female
  Weight: 36.3 kg

DRUGS (1)
  1. ALBUMIN, 5% [Suspect]
     Active Substance: ALBUMIN HUMAN
     Indication: HYPOTENSION
     Route: 041
     Dates: start: 20160531, end: 20160531

REACTIONS (1)
  - Hypersensitivity [None]

NARRATIVE: CASE EVENT DATE: 20160531
